FAERS Safety Report 15854261 (Version 1)
Quarter: 2019Q1

REPORT INFORMATION
  Report Type: Spontaneous
  Country: US (occurrence: US)
  Receive Date: 20190121
  Receipt Date: 20190121
  Transmission Date: 20190417
  Serious: Yes (Disabling)
  Sender: FDA-Public Use
  Company Number: None

PATIENT
  Age: 32 Year
  Sex: Male
  Weight: 76.05 kg

DRUGS (5)
  1. VITAMIN D [Concomitant]
     Active Substance: CHOLECALCIFEROL
  2. CLOMIPHENE CITRATE. [Concomitant]
     Active Substance: CLOMIPHENE CITRATE
  3. PROPECIA [Suspect]
     Active Substance: FINASTERIDE
     Indication: ANDROGENETIC ALOPECIA
     Dosage: ?          QUANTITY:1 TABLET(S);?
     Route: 048
     Dates: start: 20150801, end: 20170701
  4. AROMASIN [Concomitant]
     Active Substance: EXEMESTANE
  5. LEVOTHYROXENE [Concomitant]

REACTIONS (7)
  - Emotional disorder [None]
  - Feeling abnormal [None]
  - Loss of libido [None]
  - Amnesia [None]
  - Depression [None]
  - Erectile dysfunction [None]
  - Anxiety [None]

NARRATIVE: CASE EVENT DATE: 20170301
